FAERS Safety Report 8563800-2 (Version None)
Quarter: 2012Q3

REPORT INFORMATION
  Report Type: 
  Country: None (occurrence: None)
  Receive Date: 20120803
  Receipt Date: 20120723
  Transmission Date: 20120928
  Serious: Yes (Life-Threatening, Other)
  Sender: FDA-Public Use
  Company Number: IN-BRISTOL-MYERS SQUIBB COMPANY-16835134

PATIENT
  Age: 11 Month
  Sex: Male

DRUGS (1)
  1. WARFARIN SODIUM [Suspect]
     Route: 064

REACTIONS (2)
  - FOETAL WARFARIN SYNDROME [None]
  - HYPOXIC-ISCHAEMIC ENCEPHALOPATHY [None]
